FAERS Safety Report 6070004-4 (Version None)
Quarter: 2009Q1

REPORT INFORMATION
  Report Type: 
  Country: None (occurrence: None)
  Receive Date: 20090209
  Receipt Date: 20090127
  Transmission Date: 20090719
  Serious: Yes (Other)
  Sender: FDA-Public Use
  Company Number: PHHY2008DE32745

PATIENT
  Sex: Male

DRUGS (5)
  1. GLEEVEC [Suspect]
     Indication: GASTROINTESTINAL STROMAL TUMOUR
     Dosage: 400 MG PER DAY
     Route: 048
  2. MARCUMAR [Suspect]
     Indication: ATRIAL FIBRILLATION
     Dosage: UNK
     Route: 048
     Dates: start: 20081016
  3. BISOPROLOL FUMARATE [Concomitant]
     Dosage: HALF TABLET, BID
     Route: 048
  4. LORZAAR PLUS [Concomitant]
     Indication: HYPERTENSION
     Dosage: HALF TABLET PER DAY
     Route: 048
  5. PANTOZOL [Concomitant]
     Dosage: 40 MG PER DAY
     Route: 048

REACTIONS (2)
  - DRUG INTERACTION [None]
  - PROTHROMBIN TIME SHORTENED [None]
